FAERS Safety Report 9178317 (Version 2)
Quarter: 2013Q2

REPORT INFORMATION
  Report Type: Spontaneous
  Country: US (occurrence: US)
  Receive Date: 20130321
  Receipt Date: 20130508
  Transmission Date: 20140414
  Serious: No
  Sender: FDA-Public Use
  Company Number: US-PFIZER INC-2013063816

PATIENT
  Age: 62 Year
  Sex: Female

DRUGS (3)
  1. NORVASC [Suspect]
     Indication: OEDEMA PERIPHERAL
     Dosage: 5 MG, 2X/DAY
     Route: 048
     Dates: start: 201006, end: 201006
  2. FLEXERIL [Concomitant]
     Dosage: UNK
  3. CYMBALTA [Concomitant]
     Dosage: UNK

REACTIONS (1)
  - Oedema peripheral [Recovered/Resolved]
